FAERS Safety Report 19705760 (Version 8)
Quarter: 2021Q4

REPORT INFORMATION
  Report Type: Report from Study
  Country: CN (occurrence: CN)
  Receive Date: 20210817
  Receipt Date: 20211011
  Transmission Date: 20220303
  Serious: Yes (Death, Hospitalization)
  Sender: FDA-Public Use
  Company Number: CN-ROCHE-2888777

PATIENT
  Age: 67 Year
  Sex: Male
  Weight: 62 kg

DRUGS (47)
  1. ATEZOLIZUMAB [Suspect]
     Active Substance: ATEZOLIZUMAB
     Indication: Small cell lung cancer extensive stage
     Dosage: ON 30/JUL/2021, HE RECEIVED MOST RECENT DOSE OF ATEZOLIZUMAB (1200 MG) PRIOR TO ONSET OF SERIOUS ADV
     Route: 041
     Dates: start: 20210730
  2. BEVACIZUMAB [Suspect]
     Active Substance: BEVACIZUMAB
     Indication: Small cell lung cancer extensive stage
     Dosage: ON 30/JUL/2021, HE RECEIVED MOST RECENT DOSE OF BLINDED BEVACIZUMAB PRIOR TO ONSET OF SERIOUS ADVERS
     Route: 042
     Dates: start: 20210730
  3. CARBOPLATIN [Suspect]
     Active Substance: CARBOPLATIN
     Indication: Small cell lung cancer extensive stage
     Dosage: ON 30/JUL/2021, HE RECEIVED MOST RECENT DOSE OF CARBOPLATIN (532 MG) PRIOR TO ONSET OF SERIOUS ADVER
     Route: 042
     Dates: start: 20210730
  4. ETOPOSIDE [Suspect]
     Active Substance: ETOPOSIDE
     Indication: Small cell lung cancer extensive stage
     Dosage: ON 01/AUG/2021, HE RECEIVED MOST RECENT DOSE OF ETOPOSIDE (164 MG) PRIOR TO ONSET OF SERIOUS ADVERSE
     Route: 042
     Dates: start: 20210730
  5. AMLODIPINE BESYLATE [Concomitant]
     Active Substance: AMLODIPINE BESYLATE
     Indication: Hypertension
     Route: 048
     Dates: start: 20120715
  6. AMLODIPINE BESYLATE [Concomitant]
     Active Substance: AMLODIPINE BESYLATE
     Route: 048
     Dates: start: 20210809
  7. SODIUM CHLORIDE [Concomitant]
     Active Substance: SODIUM CHLORIDE
     Indication: Hyponatraemia
     Route: 042
     Dates: start: 20210716, end: 20210804
  8. SODIUM CHLORIDE [Concomitant]
     Active Substance: SODIUM CHLORIDE
     Route: 042
     Dates: start: 20210810, end: 20210818
  9. SODIUM CHLORIDE [Concomitant]
     Active Substance: SODIUM CHLORIDE
     Route: 042
     Dates: start: 20210816, end: 20210818
  10. SODIUM CHLORIDE [Concomitant]
     Active Substance: SODIUM CHLORIDE
     Route: 042
     Dates: end: 20210815
  11. RABEPRAZOLE [Concomitant]
     Active Substance: RABEPRAZOLE
     Indication: Abdominal discomfort
     Route: 042
     Dates: start: 20210718, end: 20210801
  12. RABEPRAZOLE [Concomitant]
     Active Substance: RABEPRAZOLE
     Route: 042
     Dates: start: 20210810, end: 20210818
  13. CODEINE [Concomitant]
     Active Substance: CODEINE
     Dates: start: 20210709
  14. CODEINE [Concomitant]
     Active Substance: CODEINE
     Dates: start: 20210809
  15. MOSAPRIDE CITRATE [Concomitant]
     Active Substance: MOSAPRIDE CITRATE
     Route: 048
     Dates: start: 20210720
  16. MOSAPRIDE CITRATE [Concomitant]
     Active Substance: MOSAPRIDE CITRATE
     Route: 048
     Dates: start: 20210809
  17. VITAMIN B6 [Concomitant]
     Active Substance: PYRIDOXINE HYDROCHLORIDE
     Dates: start: 20210720, end: 20210818
  18. VITAMIN B6 [Concomitant]
     Active Substance: PYRIDOXINE HYDROCHLORIDE
     Route: 042
     Dates: start: 20210810
  19. LACTULOSE [Concomitant]
     Active Substance: LACTULOSE
     Route: 048
     Dates: start: 20210722, end: 20210728
  20. TROPISETRON [Concomitant]
     Active Substance: TROPISETRON
  21. HYDROCHLOROTHIAZIDE\IRBESARTAN [Concomitant]
     Active Substance: HYDROCHLOROTHIAZIDE\IRBESARTAN
     Indication: Hypertension
     Route: 048
     Dates: start: 20210730
  22. HYDROCHLOROTHIAZIDE\IRBESARTAN [Concomitant]
     Active Substance: HYDROCHLOROTHIAZIDE\IRBESARTAN
     Route: 048
     Dates: start: 20210812, end: 20210817
  23. HYDROCHLOROTHIAZIDE\IRBESARTAN [Concomitant]
     Active Substance: HYDROCHLOROTHIAZIDE\IRBESARTAN
     Route: 048
     Dates: start: 20210809
  24. PEGYLATED RECOMBINANT HUMAN GRANULOCYTE COLONY STIMULATING FACTOR [Concomitant]
     Dates: start: 20210802
  25. NIFEDIPINE [Concomitant]
     Active Substance: NIFEDIPINE
     Indication: Hypertension
     Route: 048
     Dates: start: 20210730, end: 20210730
  26. NIFEDIPINE [Concomitant]
     Active Substance: NIFEDIPINE
     Route: 048
     Dates: start: 20210812, end: 20210812
  27. CHLORPROMAZINE [Concomitant]
     Active Substance: CHLORPROMAZINE
     Indication: Vomiting
     Route: 030
     Dates: start: 20210802, end: 20210802
  28. CHLORPROMAZINE [Concomitant]
     Active Substance: CHLORPROMAZINE
     Indication: Nausea
     Route: 030
     Dates: start: 20210818
  29. TROPISETRON [Concomitant]
     Active Substance: TROPISETRON
     Indication: Vomiting
     Route: 042
     Dates: start: 20210802, end: 20210802
  30. TROPISETRON [Concomitant]
     Active Substance: TROPISETRON
     Indication: Nausea
  31. FOSAPREPITANT [Concomitant]
     Active Substance: FOSAPREPITANT
  32. TOLVAPTAN [Concomitant]
     Active Substance: TOLVAPTAN
     Indication: Hyponatraemia
     Route: 048
     Dates: start: 20210802, end: 20210807
  33. DEXTROSE\SODIUM CHLORIDE [Concomitant]
     Active Substance: DEXTROSE\SODIUM CHLORIDE
     Route: 042
     Dates: start: 20210810, end: 20210818
  34. PALONOSETRON HYDROCHLORIDE [Concomitant]
     Active Substance: PALONOSETRON HYDROCHLORIDE
     Indication: Vomiting
     Route: 048
     Dates: start: 20210803, end: 20210809
  35. PALONOSETRON HYDROCHLORIDE [Concomitant]
     Active Substance: PALONOSETRON HYDROCHLORIDE
     Indication: Nausea
  36. SODIUM BICARBONATE [Concomitant]
     Active Substance: SODIUM BICARBONATE
     Indication: Renal injury
     Route: 042
     Dates: start: 20210810, end: 20210817
  37. GRANULOCYTE COLONY-STIMULATING FACTOR NOS [Concomitant]
     Active Substance: GRANULOCYTE COLONY-STIMULATING FACTOR NOS
     Indication: Leukopenia
     Route: 058
     Dates: start: 20210810, end: 20210810
  38. CLONAZEPAM [Concomitant]
     Active Substance: CLONAZEPAM
     Indication: Mania
     Route: 048
     Dates: start: 20210813, end: 20210818
  39. CLONAZEPAM [Concomitant]
     Active Substance: CLONAZEPAM
     Route: 048
     Dates: start: 20210818
  40. NITROFURAZONE [Concomitant]
     Active Substance: NITROFURAZONE
     Dates: start: 20210815
  41. NITROFURAZONE [Concomitant]
     Active Substance: NITROFURAZONE
     Dates: start: 20210818
  42. CHLORPROMAZINE [Concomitant]
     Active Substance: CHLORPROMAZINE
     Indication: Mania
     Dates: start: 20210811, end: 20210811
  43. CHLORPROMAZINE [Concomitant]
     Active Substance: CHLORPROMAZINE
     Indication: Immune-mediated encephalitis
     Dates: start: 20210816, end: 20210816
  44. CHLORPROMAZINE [Concomitant]
     Active Substance: CHLORPROMAZINE
     Route: 042
     Dates: start: 20210818, end: 20210818
  45. MEPERIDINE [Concomitant]
     Active Substance: MEPERIDINE
     Indication: Immune-mediated encephalitis
     Route: 042
     Dates: start: 20210818, end: 20210818
  46. PROMETHAZINE [Concomitant]
     Active Substance: PROMETHAZINE HYDROCHLORIDE
     Indication: Mania
     Route: 042
     Dates: start: 20210818, end: 20210818
  47. PROMETHAZINE [Concomitant]
     Active Substance: PROMETHAZINE HYDROCHLORIDE
     Indication: Immune-mediated encephalitis

REACTIONS (1)
  - Immune-mediated encephalitis [Fatal]

NARRATIVE: CASE EVENT DATE: 20210809
